FAERS Safety Report 5812083-2 (Version None)
Quarter: 2008Q3

REPORT INFORMATION
  Report Type: 
  Country: None (occurrence: None)
  Receive Date: 20080716
  Receipt Date: 20080708
  Transmission Date: 20090109
  Serious: Yes (Other)
  Sender: FDA-Public Use
  Company Number: BB-BOEHRINGER INGELHEIM GMBH, GERMANY-2008-CN-00328CN

PATIENT
  Age: 85 Year
  Sex: Male

DRUGS (2)
  1. FLOMAX [Suspect]
  2. ATACAND [Concomitant]

REACTIONS (2)
  - APLASTIC ANAEMIA [None]
  - PANCYTOPENIA [None]
